FAERS Safety Report 9173767 (Version 1)
Quarter: 2013Q1

REPORT INFORMATION
  Report Type: Report from Study
  Country: US (occurrence: US)
  Receive Date: 20130320
  Receipt Date: 20130320
  Transmission Date: 20140127
  Serious: Yes (Death)
  Sender: FDA-Public Use
  Company Number: US-VERTEX PHARMACEUTICALS INC.-2013-003789

PATIENT
  Age: 49 Year
  Sex: Male

DRUGS (17)
  1. VX-950 (TELAPREVIR) [Suspect]
     Indication: HEPATITIS C
     Dosage: 750 MG, TID
     Route: 048
  2. RIBAVIRIN [Suspect]
     Indication: HEPATITIS C
     Dosage: 200 MG, UNK
  3. PEGASYS [Suspect]
     Indication: HEPATITIS C
     Dosage: 181 MCG/M
  4. CYMBALTA [Concomitant]
     Dosage: 20 MG, UNK
  5. ISENTRESS [Concomitant]
     Dosage: 400 MG, UNK
  6. UROXATRAL [Concomitant]
     Dosage: 10 MG, UNK
  7. AMLODIPINE [Concomitant]
     Dosage: 10 MG, UNK
  8. ATENOLOL [Concomitant]
     Dosage: 100 MG, UNK
  9. GABAPENTIN [Concomitant]
     Dosage: 300 MG, UNK
  10. DILTIAZEM [Concomitant]
     Dosage: 120 MG, UNK
  11. HYDROCHLOROTH [Concomitant]
     Dosage: 25 MG, UNK
  12. NEXIUM [Concomitant]
     Dosage: 20 MG, UNK
  13. EMTRIVA [Concomitant]
     Dosage: 200 MG, UNK
  14. VESICARE [Concomitant]
     Dosage: 10 MG, UNK
  15. MULTIVITAMIN [Concomitant]
  16. INTELENCE [Concomitant]
     Dosage: 100 MG, UNK
  17. ALLOPURINOL [Concomitant]
     Dosage: 500 MG, UNK

REACTIONS (1)
  - Death [Fatal]
